FAERS Safety Report 4872998-9 (Version None)
Quarter: 2005Q4

REPORT INFORMATION
  Report Type: 
  Country: None (occurrence: None)
  Receive Date: 20051201
  Receipt Date: 20050805
  Transmission Date: 20060501
  Serious: No
  Sender: FDA-Public Use
  Company Number: 2005PV000865

PATIENT
  Sex: Female

DRUGS (2)
  1. BYETTA [Suspect]
     Indication: DIABETES MELLITUS
     Dosage: SEE IMAGE
     Route: 058
     Dates: start: 20050915
  2. GLUCOPHAGE [Concomitant]

REACTIONS (3)
  - ABDOMINAL DISTENSION [None]
  - MALAISE [None]
  - POST PROCEDURAL COMPLICATION [None]
